FAERS Safety Report 5517241-2 (Version None)
Quarter: 2007Q4

REPORT INFORMATION
  Report Type: 
  Country: None (occurrence: None)
  Receive Date: 20071114
  Receipt Date: 20070912
  Transmission Date: 20080405
  Serious: No
  Sender: FDA-Public Use
  Company Number: A0680761A

PATIENT
  Age: 55 Year
  Sex: Female

DRUGS (1)
  1. COMMIT [Suspect]
     Dates: start: 20070909

REACTIONS (6)
  - DYSPEPSIA [None]
  - INTENTIONAL DRUG MISUSE [None]
  - ORAL DISCOMFORT [None]
  - PARAESTHESIA ORAL [None]
  - SALIVARY HYPERSECRETION [None]
  - SENSATION OF FOREIGN BODY [None]
